FAERS Safety Report 8335355-9 (Version None)
Quarter: 2012Q2

REPORT INFORMATION
  Report Type: 
  Country: None (occurrence: None)
  Receive Date: 20120503
  Receipt Date: 20120430
  Transmission Date: 20120825
  Serious: Yes (Other)
  Sender: FDA-Public Use
  Company Number: US-ELI_LILLY_AND_COMPANY-US201204008604

PATIENT
  Sex: Female

DRUGS (4)
  1. GLUCOPHAGE                              /USA/ [Concomitant]
     Indication: TYPE 2 DIABETES MELLITUS
     Dosage: UNK, BID
     Route: 048
  2. GLIPIZIDE [Concomitant]
     Indication: TYPE 2 DIABETES MELLITUS
     Dosage: UNK, QD
     Route: 048
  3. BYETTA [Suspect]
     Indication: TYPE 2 DIABETES MELLITUS
     Dosage: 5 UG, BID
     Route: 058
     Dates: start: 20120423, end: 20120423
  4. BYETTA [Suspect]
     Dosage: UNK
     Route: 058
     Dates: start: 20120424

REACTIONS (6)
  - HAEMORRHAGE [None]
  - JAW OPERATION [None]
  - INTENTIONAL DRUG MISUSE [None]
  - INJURY ASSOCIATED WITH DEVICE [None]
  - DIARRHOEA [None]
  - DECREASED APPETITE [None]
